FAERS Safety Report 4517472-4 (Version None)
Quarter: 2004Q4

REPORT INFORMATION
  Report Type: 
  Country: None (occurrence: None)
  Receive Date: 20041130
  Receipt Date: 20041111
  Transmission Date: 20050328
  Serious: Yes (Hospitalization)
  Sender: FDA-Public Use
  Company Number: USA041183925

PATIENT
  Age: 46 Year
  Sex: Male

DRUGS (5)
  1. CYMBALTA [Suspect]
     Dates: start: 20041001, end: 20041101
  2. INSULIN [Concomitant]
  3. TYLENOL W/ CODEINE [Concomitant]
  4. KLONOPIN [Concomitant]
  5. NEXIUM [Concomitant]

REACTIONS (3)
  - ALANINE AMINOTRANSFERASE INCREASED [None]
  - ASPARTATE AMINOTRANSFERASE INCREASED [None]
  - DIABETIC KETOACIDOSIS [None]
